FAERS Safety Report 10738444 (Version 1)
Quarter: 2015Q1

REPORT INFORMATION
  Report Type: Spontaneous
  Country: KR (occurrence: KR)
  Receive Date: 20150126
  Receipt Date: 20150126
  Transmission Date: 20150721
  Serious: Yes (Hospitalization, Other)
  Sender: FDA-Public Use
  Company Number: KR-WATSON-2015-00644

PATIENT
  Age: 67 Year
  Sex: Male

DRUGS (1)
  1. ANAGRELIDE HYDROCHLORIDE (WATSON LABORATORIES) [Suspect]
     Active Substance: ANAGRELIDE HYDROCHLORIDE
     Indication: MYELOPROLIFERATIVE DISORDER
     Dosage: UNK, 2-3MG
     Route: 065

REACTIONS (1)
  - Congestive cardiomyopathy [Recovered/Resolved]
